FAERS Safety Report 7623753-8 (Version None)
Quarter: 2011Q3

REPORT INFORMATION
  Report Type: 
  Country: None (occurrence: None)
  Receive Date: 20110720
  Receipt Date: 20110712
  Transmission Date: 20111222
  Serious: Yes (Hospitalization)
  Sender: FDA-Public Use
  Company Number: JP-GLAXOSMITHKLINE-B0726843A

PATIENT

DRUGS (1)
  1. ARIXTRA [Suspect]
     Indication: PULMONARY INFARCTION
     Route: 058

REACTIONS (1)
  - IRON DEFICIENCY [None]
